FAERS Safety Report 4332839-5 (Version None)
Quarter: 2004Q1

REPORT INFORMATION
  Report Type: 
  Country: None (occurrence: None)
  Receive Date: 20040330
  Receipt Date: 20040315
  Transmission Date: 20041129
  Serious: Yes (Death, Hospitalization)
  Sender: FDA-Public Use
  Company Number: A01200401255

PATIENT
  Age: 65 Year
  Sex: Male

DRUGS (2)
  1. ELOXATIN [Suspect]
     Indication: COLON CANCER
     Dosage: 240 MG ONCE
     Route: 042
     Dates: start: 20040311, end: 20040311
  2. 5 HT3 ANTAGONIST NOS [Concomitant]

REACTIONS (3)
  - MUSCLE SPASMS [None]
  - NEUROLOGICAL SYMPTOM [None]
  - OVERDOSE [None]
